FAERS Safety Report 6308062-1 (Version None)
Quarter: 2009Q3

REPORT INFORMATION
  Report Type: 
  Country: None (occurrence: None)
  Receive Date: 20090813
  Receipt Date: 20090807
  Transmission Date: 20100115
  Serious: Yes (Death, Hospitalization)
  Sender: FDA-Public Use
  Company Number: B0586189A

PATIENT
  Sex: Female
  Weight: 62 kg

DRUGS (3)
  1. TYKERB [Suspect]
     Indication: BREAST CANCER RECURRENT
     Dosage: 1250MG PER DAY
     Route: 048
     Dates: start: 20090709, end: 20090721
  2. XELODA [Suspect]
     Indication: BREAST CANCER RECURRENT
     Dosage: 3000MG PER DAY
     Route: 048
     Dates: start: 20090709, end: 20090721
  3. PYDOXAL [Suspect]
     Dosage: 30MG PER DAY
     Route: 048
     Dates: start: 20090709, end: 20090721

REACTIONS (4)
  - BLOOD PRESSURE DECREASED [None]
  - CACHEXIA [None]
  - DYSPNOEA [None]
  - PYREXIA [None]
